FAERS Safety Report 5684370-2 (Version None)
Quarter: 2008Q1

REPORT INFORMATION
  Report Type: 
  Country: None (occurrence: None)
  Receive Date: 20080328
  Receipt Date: 20080319
  Transmission Date: 20080703
  Serious: Yes (Hospitalization)
  Sender: FDA-Public Use
  Company Number: B0513780A

PATIENT
  Age: 61 Year
  Sex: Male

DRUGS (7)
  1. VALACYCLOVIR [Suspect]
     Indication: DRUG USE FOR UNKNOWN INDICATION
     Route: 065
  2. LANSOPRAZOLE [Suspect]
     Indication: DRUG USE FOR UNKNOWN INDICATION
     Route: 065
  3. HEPARIN [Concomitant]
     Indication: CARDIOGENIC SHOCK
     Route: 065
     Dates: start: 20080108
  4. ASPIRIN [Concomitant]
     Indication: CARDIOGENIC SHOCK
     Route: 065
     Dates: start: 20080108
  5. BURINEX [Concomitant]
     Indication: CARDIOGENIC SHOCK
     Route: 065
     Dates: start: 20080108
  6. DOBUTAMINE HCL [Concomitant]
     Indication: CARDIOGENIC SHOCK
     Route: 065
     Dates: start: 20080108
  7. PIPERACILLIN SODIUM AND TAZOBACTAM SODIUM [Concomitant]
     Route: 065

REACTIONS (2)
  - BONE MARROW FAILURE [None]
  - NEUTROPENIA [None]
